FAERS Safety Report 17253552 (Version 1)
Quarter: 2020Q1

REPORT INFORMATION
  Report Type: Report from Study
  Country: FR (occurrence: FR)
  Receive Date: 20200109
  Receipt Date: 20200109
  Transmission Date: 20200409
  Serious: Yes (Other)
  Sender: FDA-Public Use
  Company Number: FR-JNJFOC-20191248436

PATIENT
  Age: 68 Year
  Sex: Female

DRUGS (6)
  1. SERTRALINE [Concomitant]
     Active Substance: SERTRALINE HYDROCHLORIDE
     Indication: DEPRESSION
     Dates: start: 20191128
  2. MIANSERIN HYDROCHLORIDE [Concomitant]
     Active Substance: MIANSERIN HYDROCHLORIDE
     Indication: DEPRESSION
     Dates: start: 20180101
  3. ESKETAMINE [Suspect]
     Active Substance: ESKETAMINE
     Indication: DEPRESSION
     Dates: start: 20191203, end: 20191217
  4. ESKETAMINE [Suspect]
     Active Substance: ESKETAMINE
     Dosage: TREATMENT 4 + 5
  5. ESKETAMINE [Suspect]
     Active Substance: ESKETAMINE
     Dates: start: 20191203
  6. SERTRALINE [Concomitant]
     Active Substance: SERTRALINE HYDROCHLORIDE
     Dates: start: 20191211

REACTIONS (6)
  - Suicidal ideation [Unknown]
  - Depression [Unknown]
  - Dissociation [Unknown]
  - Blood pressure increased [Unknown]
  - Derealisation [Unknown]
  - Anxiety [Unknown]

NARRATIVE: CASE EVENT DATE: 201912
